FAERS Safety Report 9702110 (Version 1)
Quarter: 2013Q4

REPORT INFORMATION
  Report Type: Spontaneous
  Country: US (occurrence: None)
  Receive Date: 20131120
  Receipt Date: 20131120
  Transmission Date: 20140711
  Serious: Yes (Hospitalization)
  Sender: FDA-Public Use
  Company Number: 2013-US-003181

PATIENT
  Age: 43 Year
  Sex: Male

DRUGS (2)
  1. XYREM [Suspect]
     Indication: NARCOLEPSY
     Route: 048
     Dates: start: 200709, end: 2007
  2. LIDOCAINE [Suspect]

REACTIONS (3)
  - Drug hypersensitivity [None]
  - Cyst [None]
  - Cyst removal [None]
